FAERS Safety Report 4477588-8 (Version None)
Quarter: 2004Q4

REPORT INFORMATION
  Report Type: 
  Country: None (occurrence: None)
  Receive Date: 20041012
  Receipt Date: 20040927
  Transmission Date: 20050328
  Serious: Yes (Death)
  Sender: FDA-Public Use
  Company Number: 2004072261

PATIENT
  Age: 68 Year
  Sex: 0

DRUGS (3)
  1. DOXYLAMINE SUCCINATE [Suspect]
     Indication: COMPLETED SUICIDE
     Dosage: ORAL
     Route: 048
  2. PARACETAMOL (ETHANOL) (PARACETAMOL) [Suspect]
     Indication: COMPLETED SUICIDE
     Dosage: ORAL
     Route: 048
  3. ACETYLSALICYLIC ACID (ACETILSALICYLIC ACID) [Suspect]
     Indication: COMPLETED SUICIDE
     Dosage: ORAL
     Route: 048

REACTIONS (2)
  - COMPLETED SUICIDE [None]
  - MULTIPLE DRUG OVERDOSE INTENTIONAL [None]
